FAERS Safety Report 18789473 (Version 2)
Quarter: 2021Q3

REPORT INFORMATION
  Report Type: Spontaneous
  Country: US (occurrence: US)
  Receive Date: 20210125
  Receipt Date: 20210823
  Transmission Date: 20211014
  Serious: Yes (Hospitalization)
  Sender: FDA-Public Use
  Company Number: US-ACORDA-ACO_165990_2020

PATIENT
  Age: 44 Year
  Sex: Female

DRUGS (5)
  1. AVONEX [Suspect]
     Active Substance: INTERFERON BETA-1A
     Indication: MULTIPLE SCLEROSIS
     Dosage: 30 MICROGRAM
     Route: 065
     Dates: start: 20090508, end: 20110501
  2. AMPYRA [Suspect]
     Active Substance: DALFAMPRIDINE
     Indication: GAIT DISTURBANCE
     Dosage: UNK
     Route: 065
  3. CELEBREX [Concomitant]
     Active Substance: CELECOXIB
     Indication: PRODUCT USED FOR UNKNOWN INDICATION
     Dosage: UNK
     Route: 065
  4. TECFIDERA [Suspect]
     Active Substance: DIMETHYL FUMARATE
     Indication: MULTIPLE SCLEROSIS
     Dosage: 120 MILLIGRAM, BID
     Route: 048
     Dates: start: 20150724, end: 20150730
  5. TECFIDERA [Suspect]
     Active Substance: DIMETHYL FUMARATE
     Dosage: 240 MILLIGRAM, BID
     Route: 048
     Dates: start: 20150731

REACTIONS (20)
  - Meniscus injury [Recovered/Resolved]
  - Tendon rupture [Unknown]
  - Nausea [Recovering/Resolving]
  - Fall [Recovered/Resolved]
  - Joint space narrowing [Not Recovered/Not Resolved]
  - Mobility decreased [Unknown]
  - Osteoarthritis [Unknown]
  - Flatulence [Recovering/Resolving]
  - Fatigue [Recovered/Resolved]
  - Gastric disorder [Recovered/Resolved]
  - Flushing [Recovering/Resolving]
  - Pruritus [Recovered/Resolved]
  - Illness [Recovered/Resolved]
  - Memory impairment [Unknown]
  - Arthralgia [Not Recovered/Not Resolved]
  - Meniscus injury [Unknown]
  - Influenza like illness [Recovered/Resolved]
  - Thinking abnormal [Unknown]
  - Hair texture abnormal [Not Recovered/Not Resolved]
  - Injection site pain [Unknown]

NARRATIVE: CASE EVENT DATE: 20090508
